FAERS Safety Report 8439606-1 (Version None)
Quarter: 2012Q2

REPORT INFORMATION
  Report Type: 
  Country: None (occurrence: None)
  Receive Date: 20120615
  Receipt Date: 20120605
  Transmission Date: 20120825
  Serious: Yes (Other)
  Sender: FDA-Public Use
  Company Number: JP-VERTEX PHARMACEUTICALS INC.-AE-2012-004724

PATIENT
  Age: 52 Year
  Sex: Male

DRUGS (21)
  1. PEG-INTRON [Concomitant]
     Route: 058
     Dates: start: 20120417, end: 20120501
  2. REBETOL [Concomitant]
     Route: 048
     Dates: start: 20120306, end: 20120312
  3. REBETOL [Concomitant]
     Route: 048
     Dates: start: 20120508
  4. AMLODIPINE [Concomitant]
     Route: 048
     Dates: start: 20110606
  5. CONFATANIN [Concomitant]
     Route: 048
     Dates: start: 20120206, end: 20120318
  6. TELAVIC (TELAPREVIR) [Suspect]
     Route: 048
     Dates: start: 20120417, end: 20120508
  7. PEG-INTRON [Concomitant]
     Indication: HEPATITIS C
     Route: 058
     Dates: start: 20120207, end: 20120313
  8. REBETOL [Concomitant]
     Route: 048
     Dates: start: 20120424, end: 20120430
  9. REBETOL [Concomitant]
     Route: 048
     Dates: start: 20120313, end: 20120318
  10. TELAVIC (TELAPREVIR) [Suspect]
     Route: 048
     Dates: start: 20120403, end: 20120416
  11. PEG-INTRON [Concomitant]
     Route: 058
     Dates: start: 20120410, end: 20120410
  12. REBETOL [Concomitant]
     Route: 048
     Dates: start: 20120403, end: 20120423
  13. REBETOL [Concomitant]
     Route: 048
     Dates: start: 20120501, end: 20120507
  14. REBETOL [Concomitant]
     Indication: HEPATITIS C
     Route: 048
     Dates: start: 20120207, end: 20120305
  15. OLMESARTAN MEDOXOMIL [Concomitant]
     Route: 048
     Dates: start: 20110606, end: 20120507
  16. TELAVIC (TELAPREVIR) [Suspect]
     Indication: HEPATITIS C
     Route: 048
     Dates: start: 20120207, end: 20120318
  17. PEG-INTRON [Concomitant]
     Route: 058
     Dates: start: 20120403, end: 20120403
  18. PEG-INTRON [Concomitant]
     Route: 058
     Dates: start: 20120508
  19. OLMESARTAN MEDOXOMIL [Concomitant]
     Route: 048
     Dates: start: 20120508
  20. NESINA [Concomitant]
     Route: 048
     Dates: start: 20120113
  21. URSO 250 [Concomitant]
     Route: 048
     Dates: end: 20120312

REACTIONS (4)
  - WHITE BLOOD CELL COUNT DECREASED [None]
  - HAEMOGLOBIN DECREASED [None]
  - HYPERURICAEMIA [None]
  - NEUTROPHIL COUNT DECREASED [None]
